FAERS Safety Report 9501238 (Version 1)
Quarter: 2013Q3

REPORT INFORMATION
  Report Type: Spontaneous
  Country: US (occurrence: US)
  Receive Date: 20130905
  Receipt Date: 20130905
  Transmission Date: 20140515
  Serious: No
  Sender: FDA-Public Use
  Company Number: US-BAYER-2013-107179

PATIENT
  Age: 74 Year
  Sex: Female
  Weight: 111.11 kg

DRUGS (8)
  1. ALEVE CAPLET [Suspect]
     Indication: ARTHRITIS
     Dosage: 1 UNIT
     Route: 048
     Dates: start: 1995
  2. ALEVE TABLET [Suspect]
     Indication: ARTHRITIS
     Dosage: 1 DF, PRN
     Route: 048
     Dates: start: 1995, end: 1995
  3. BAYER ASPIRIN REGIMEN ADULT LOW STRENGTH [Suspect]
     Dosage: 1 DF, UNK
     Route: 048
  4. QUINAPRIL [Concomitant]
  5. JANUVIA [Concomitant]
  6. SYNTHROID [Concomitant]
  7. PROZAC [Concomitant]
  8. ECOTRIN [Concomitant]

REACTIONS (3)
  - Foreign body [None]
  - Incorrect drug administration duration [None]
  - Drug ineffective [None]
